FAERS Safety Report 7230943-5 (Version None)
Quarter: 2011Q1

REPORT INFORMATION
  Report Type: 
  Country: None (occurrence: None)
  Receive Date: 20110118
  Receipt Date: 20110107
  Transmission Date: 20110831
  Serious: Yes (Other)
  Sender: FDA-Public Use
  Company Number: JP-ROCHE-734867

PATIENT
  Sex: Male
  Weight: 56 kg

DRUGS (16)
  1. AVASTIN [Suspect]
     Indication: RECTAL CANCER METASTATIC
     Route: 041
     Dates: start: 20100305, end: 20100416
  2. ELPLAT [Concomitant]
     Dosage: NOTE: DOSAGE IS UNCERTAIN
     Route: 041
     Dates: start: 20100212, end: 20100416
  3. PARIET [Concomitant]
     Route: 048
     Dates: start: 20100527
  4. GRANISETRON HCL [Concomitant]
     Route: 041
     Dates: start: 20100212
  5. ELPLAT [Concomitant]
     Route: 041
     Dates: start: 20100430
  6. LOXONIN [Concomitant]
     Route: 048
     Dates: start: 20100207, end: 20100228
  7. 5-FU [Concomitant]
     Dosage: INTRAVENOUS DRIP
     Route: 040
     Dates: start: 20100430
  8. VOLTAREN [Concomitant]
     Route: 048
     Dates: start: 20100222
  9. AVASTIN [Suspect]
     Route: 041
     Dates: start: 20100430
  10. XELODA [Suspect]
     Indication: RECTAL CANCER METASTATIC
     Dosage: IT IS ONE ADMINISTERING WEEKLY HOLIDAY MEDICINE FOR TWO WEEKS
     Route: 048
     Dates: start: 20100212, end: 20100416
  11. PYDOXAL [Concomitant]
     Route: 048
     Dates: start: 20100209, end: 20100507
  12. DECADRON [Concomitant]
     Route: 041
     Dates: start: 20100212
  13. 5-FU [Concomitant]
     Route: 040
     Dates: start: 20100430
  14. LEUCOVORIN CALCIUM [Concomitant]
     Route: 041
     Dates: start: 20100430
  15. MUCOSTA [Concomitant]
     Route: 048
     Dates: start: 20100207, end: 20100228
  16. OXYCONTIN [Concomitant]
     Route: 048
     Dates: start: 20100209

REACTIONS (3)
  - DEHYDRATION [None]
  - PALMAR-PLANTAR ERYTHRODYSAESTHESIA SYNDROME [None]
  - DECREASED APPETITE [None]
